FAERS Safety Report 19440878 (Version 1)
Quarter: 2021Q2

REPORT INFORMATION
  Report Type: Other
  Country: GB (occurrence: GB)
  Receive Date: 20210621
  Receipt Date: 20210621
  Transmission Date: 20210717
  Serious: Yes (Hospitalization)
  Sender: FDA-Public Use
  Company Number: GB-CELLTRION INC.-2018GB024625

PATIENT

DRUGS (87)
  1. RITUXIMAB (UNKNOWN) [Suspect]
     Active Substance: RITUXIMAB
     Dosage: 660 MG/M2, EVERY 3 WEEKS (DOSAGE TEXT: DATE OF MOST RECENT DOSE PRIOR TO SAE ON 14/NOV/2018 AT 12:00
     Route: 042
     Dates: start: 20181114
  2. RITUXIMAB (UNKNOWN) [Suspect]
     Active Substance: RITUXIMAB
     Dosage: 660 MG/M2, EVERY 3 WEEKS (DOSAGE TEXT: DATE OF MOST RECENT DOSE PRIOR TO SAE ON 14/NOV/2018 AT 12:00
     Route: 042
     Dates: start: 20181114
  3. RITUXIMAB (UNKNOWN) [Suspect]
     Active Substance: RITUXIMAB
     Dosage: 660 MG/M2, EVERY 3 WEEKS (DOSAGE TEXT: DATE OF MOST RECENT DOSE PRIOR TO SAE ON 14/NOV/2018 AT 12:00
     Route: 042
     Dates: start: 20181114
  4. CYCLOPHOSPHAMIDE. [Suspect]
     Active Substance: CYCLOPHOSPHAMIDE
     Indication: DIFFUSE LARGE B-CELL LYMPHOMA
     Dosage: 1260 MG/M2, EVERY 3 WEEKS (DOSE FORM: 293)
     Route: 042
     Dates: start: 20181025
  5. DOXORUBICIN HYDROCHLORIDE. [Suspect]
     Active Substance: DOXORUBICIN HYDROCHLORIDE
     Dosage: 90 MG/M2 EVERY 3 WEEKS (DOSE FORM: 230)
     Route: 042
     Dates: start: 20181025
  6. DOXORUBICIN HYDROCHLORIDE. [Suspect]
     Active Substance: DOXORUBICIN HYDROCHLORIDE
     Dosage: 90 MG/M2, EVERY 3 WEEKS (DOSE FORM: 230)
     Route: 042
     Dates: start: 20181114
  7. VINCRISTINE [Suspect]
     Active Substance: VINCRISTINE
     Dosage: 2 MG/M2, EVERY 3 WEEKS (DOSE FORM: 293)
     Route: 042
     Dates: start: 20181114
  8. CHLORPHENAMINE [Concomitant]
     Active Substance: CHLORPHENIRAMINE MALEATE
     Indication: PRODUCT USED FOR UNKNOWN INDICATION
     Dosage: UNK
     Route: 065
     Dates: start: 20181025
  9. DOMPERIDONE [Concomitant]
     Active Substance: DOMPERIDONE
     Indication: PROPHYLAXIS OF NAUSEA AND VOMITING
     Dosage: UNK
     Route: 065
     Dates: start: 20181025
  10. HUMULIN L [Concomitant]
     Active Substance: INSULIN HUMAN
     Indication: HYPERGLYCAEMIA
     Dosage: UNK
     Route: 065
     Dates: start: 20181029, end: 20181030
  11. LOSARTAN. [Concomitant]
     Active Substance: LOSARTAN
     Dosage: 50 MG
     Route: 065
  12. METFORMIN [Concomitant]
     Active Substance: METFORMIN HYDROCHLORIDE
     Dosage: 500 MG
     Route: 065
  13. ONDANSETRON [Concomitant]
     Active Substance: ONDANSETRON
     Indication: NAUSEA
     Dosage: UNK
     Route: 065
     Dates: start: 20181025
  14. PARACETAMOL [Concomitant]
     Active Substance: ACETAMINOPHEN
     Dosage: AS REQUIRED
     Route: 065
     Dates: start: 20181123
  15. RITUXIMAB (UNKNOWN) [Suspect]
     Active Substance: RITUXIMAB
     Indication: DIFFUSE LARGE B-CELL LYMPHOMA
     Dosage: 660 MG/M2, EVERY 3 WEEKS (DOSAGE TEXT: DATE OF MOST RECENT DOSE PRIOR TO SAE ON 14/NOV/2018 AT 12:00
     Route: 042
     Dates: start: 20181114
  16. RITUXIMAB (UNKNOWN) [Suspect]
     Active Substance: RITUXIMAB
     Dosage: 660 MG/M2, EVERY 3 WEEKS (DOSAGE TEXT: DATE OF MOST RECENT DOSE PRIOR TO SAE ON 14/NOV/2018 AT 12:00
     Route: 042
     Dates: start: 20181114
  17. CYCLOPHOSPHAMIDE. [Suspect]
     Active Substance: CYCLOPHOSPHAMIDE
     Dosage: 1260 MG/M2, EVERY 3 WEEKS (DOSE FORM: 293)
     Route: 042
     Dates: start: 20181025
  18. CYCLOPHOSPHAMIDE. [Suspect]
     Active Substance: CYCLOPHOSPHAMIDE
     Dosage: 1260 MG/M2, EVERY 3 WEEKS (DOSE FORM: 293)
     Route: 042
     Dates: start: 20181114
  19. VINCRISTINE [Suspect]
     Active Substance: VINCRISTINE
     Dosage: 2 MG/M2, EVERY 3 WEEKS (DATE OF MOST RECENT DOSE PRIOR TO SAE ON 14/NOV/2018 AT 17:02) (DOSE FORM: 2
     Route: 042
     Dates: start: 20181025
  20. AMLODIPINE [Concomitant]
     Active Substance: AMLODIPINE BESYLATE
     Indication: HYPERTENSION
     Dosage: 10 MG
     Route: 065
  21. COTRIMOXAZOLE [Concomitant]
     Active Substance: SULFAMETHOXAZOLE\TRIMETHOPRIM
     Dosage: UNK
     Route: 065
     Dates: start: 20181207, end: 20181220
  22. FILGRASTIM [Concomitant]
     Active Substance: FILGRASTIM
     Indication: NEUTROPENIA
     Dosage: 300 MICROGRAM
     Route: 065
     Dates: start: 20181030, end: 20181128
  23. FOLIC ACID. [Concomitant]
     Active Substance: FOLIC ACID
     Indication: BLOOD FOLATE DECREASED
     Dosage: UNK
     Route: 065
     Dates: start: 20190404
  24. LOSARTAN. [Concomitant]
     Active Substance: LOSARTAN
     Indication: HYPERTENSION
     Dosage: 50 MG
     Route: 065
     Dates: start: 2000, end: 20181101
  25. METFORMIN [Concomitant]
     Active Substance: METFORMIN HYDROCHLORIDE
     Dosage: 1500 MG (DOSE FORM: 245)
     Route: 065
  26. PREDNISOLONE. [Concomitant]
     Active Substance: PREDNISOLONE
     Dosage: DATE OF MOST RECENT DOSE (50 MG) OF PREDNISOLONE PRIOR TO AE ONSET: 21/JAN/2019
     Route: 048
     Dates: start: 20181025
  27. CASSIA SENNA [Concomitant]
     Active Substance: HERBALS\SENNOSIDES
     Indication: CONSTIPATION
     Dosage: UNK
     Route: 065
     Dates: start: 20181101
  28. VINCRISTINE [Suspect]
     Active Substance: VINCRISTINE
     Dosage: 2 MG/M2, EVERY 3 WEEKS (DOSE FORM: 293)
     Route: 042
     Dates: start: 20181114
  29. CHOLECALCIFEROL [Concomitant]
     Active Substance: CHOLECALCIFEROL
     Indication: OSTEOPENIA
     Dosage: UNK
     Route: 065
     Dates: start: 20190617
  30. DOMPERIDONE [Concomitant]
     Active Substance: DOMPERIDONE
     Dosage: 10?30 MG
     Route: 065
     Dates: start: 20181114, end: 20181119
  31. ISOPHANE INSULIN [Concomitant]
     Active Substance: INSULIN NOS
     Indication: BLOOD MAGNESIUM DECREASED
     Dosage: UNK
     Route: 065
     Dates: start: 20181125, end: 20181128
  32. PREDNISOLONE. [Concomitant]
     Active Substance: PREDNISOLONE
     Indication: DIFFUSE LARGE B-CELL LYMPHOMA
     Dosage: 80 MG
     Route: 065
  33. CYCLOPHOSPHAMIDE. [Suspect]
     Active Substance: CYCLOPHOSPHAMIDE
     Dosage: 1260 MG/M2, EVERY 3 WEEKS (DOSE FORM: 293)
     Route: 042
     Dates: start: 20181025
  34. CYCLOPHOSPHAMIDE. [Suspect]
     Active Substance: CYCLOPHOSPHAMIDE
     Dosage: 1260 MG/M2, EVERY 3 WEEKS (DOSE FORM: 293)
     Route: 042
     Dates: start: 20181114
  35. CYCLOPHOSPHAMIDE. [Suspect]
     Active Substance: CYCLOPHOSPHAMIDE
     Dosage: 1260 MG/M2, EVERY 3 WEEKS (DOSE FORM: 293)
     Route: 042
     Dates: start: 20181114
  36. DOXORUBICIN HYDROCHLORIDE. [Suspect]
     Active Substance: DOXORUBICIN HYDROCHLORIDE
     Dosage: 90 MG/M2 EVERY 3 WEEKS (DOSE FORM: 230)
     Route: 042
     Dates: start: 20181025
  37. DOXORUBICIN HYDROCHLORIDE. [Suspect]
     Active Substance: DOXORUBICIN HYDROCHLORIDE
     Dosage: 90 MG/M2, EVERY 3 WEEKS (DOSE FORM: 230)
     Route: 042
     Dates: start: 20181114
  38. VINCRISTINE [Suspect]
     Active Substance: VINCRISTINE
     Dosage: 2 MG/M2, EVERY 3 WEEKS (DOSE FORM: 293)
     Route: 042
     Dates: start: 20181114
  39. ACTONEL [Concomitant]
     Active Substance: RISEDRONATE SODIUM
     Indication: OSTEOPOROSIS PROPHYLAXIS
     Dosage: UNK
     Route: 065
     Dates: start: 20190328
  40. GLICLAZIDE [Concomitant]
     Active Substance: GLICLAZIDE
     Dosage: 120 MG, QD
     Route: 065
     Dates: start: 2009
  41. METFORMIN [Concomitant]
     Active Substance: METFORMIN HYDROCHLORIDE
     Indication: TYPE 2 DIABETES MELLITUS
     Dosage: 1500 MG, QD (DOSE FORM: 245)
     Route: 065
  42. PARACETAMOL [Concomitant]
     Active Substance: ACETAMINOPHEN
     Indication: PAIN
     Dosage: UNK
     Route: 065
     Dates: start: 20181025
  43. RITUXIMAB (UNKNOWN) [Suspect]
     Active Substance: RITUXIMAB
     Dosage: 660 MG/M2, EVERY 3 WEEKS (DOSAGE TEXT: DATE OF MOST RECENT DOSE PRIOR TO SAE ON 14/NOV/2018 AT 12:00
     Route: 042
     Dates: start: 20181114
  44. CYCLOPHOSPHAMIDE. [Suspect]
     Active Substance: CYCLOPHOSPHAMIDE
     Dosage: 1260 MG/M2, EVERY 3 WEEKS (DOSE FORM: 293)
     Route: 042
     Dates: start: 20181025
  45. CYCLOPHOSPHAMIDE. [Suspect]
     Active Substance: CYCLOPHOSPHAMIDE
     Dosage: 1260 MG/M2, EVERY 3 WEEKS (DOSE FORM: 293)
     Route: 042
     Dates: start: 20181025
  46. DOXORUBICIN HYDROCHLORIDE. [Suspect]
     Active Substance: DOXORUBICIN HYDROCHLORIDE
     Dosage: 90 MG/M2, EVERY 3 WEEKS (DOSE FORM: 230)
     Route: 042
     Dates: start: 20181114
  47. VINCRISTINE [Suspect]
     Active Substance: VINCRISTINE
     Dosage: 2 MG/M2, EVERY 3 WEEKS (DOSE FORM: 293)
     Route: 042
     Dates: start: 20181114
  48. AMLODIPINE [Concomitant]
     Active Substance: AMLODIPINE BESYLATE
     Dosage: 10 MG
     Route: 065
     Dates: start: 2000, end: 20181108
  49. MAGNESIUM [Concomitant]
     Active Substance: MAGNESIUM
     Indication: BLOOD MAGNESIUM DECREASED
     Dosage: UNK
     Route: 065
     Dates: start: 20181123, end: 20181123
  50. METFORMIN [Concomitant]
     Active Substance: METFORMIN HYDROCHLORIDE
     Dosage: UNK
     Route: 065
     Dates: start: 1999
  51. G?CSF [Concomitant]
     Active Substance: GRANULOCYTE COLONY-STIMULATING FACTOR NOS
     Indication: NEUTROPENIA
  52. RED BLOOD CELLS [Concomitant]
     Active Substance: HUMAN RED BLOOD CELL
     Indication: ANAEMIA
  53. ISOPHANE INSULIN [Concomitant]
     Active Substance: INSULIN NOS
  54. CYCLOPHOSPHAMIDE. [Suspect]
     Active Substance: CYCLOPHOSPHAMIDE
     Dosage: 1260 MG/M2, EVERY 3 WEEKS (DOSE FORM: 293)
     Route: 042
     Dates: start: 20181114
  55. CYCLOPHOSPHAMIDE. [Suspect]
     Active Substance: CYCLOPHOSPHAMIDE
     Dosage: 1260 MG/M2, EVERY 3 WEEKS (DOSE FORM: 293)
     Route: 042
     Dates: start: 20181114
  56. DOXORUBICIN HYDROCHLORIDE. [Suspect]
     Active Substance: DOXORUBICIN HYDROCHLORIDE
     Indication: DIFFUSE LARGE B-CELL LYMPHOMA
     Dosage: 90 MG/M2 EVERY 3 WEEKS (DOSE FORM: 230)
     Route: 042
     Dates: start: 20181025
  57. DOXORUBICIN HYDROCHLORIDE. [Suspect]
     Active Substance: DOXORUBICIN HYDROCHLORIDE
     Dosage: 90 MG/M2 EVERY 3 WEEKS (DOSE FORM: 230)
     Route: 042
     Dates: start: 20181025
  58. DOXORUBICIN HYDROCHLORIDE. [Suspect]
     Active Substance: DOXORUBICIN HYDROCHLORIDE
     Dosage: 90 MG/M2, EVERY 3 WEEKS (DOSE FORM: 230)
     Route: 042
     Dates: start: 20181114
  59. OBINUTUZUMAB. [Suspect]
     Active Substance: OBINUTUZUMAB
     Dosage: 1000 MG (DOSE FORM: 230)
     Route: 042
     Dates: start: 20181025
  60. PREDNISONE. [Suspect]
     Active Substance: PREDNISONE
     Indication: DIFFUSE LARGE B-CELL LYMPHOMA
     Dosage: PREDNISONE ON DAY 1 MAY BE ADMINISTERED IV, WITH THE REMAINING DOSES ON DAYS 2?5 TO BE ADMINISTERED
     Route: 042
  61. VINCRISTINE [Suspect]
     Active Substance: VINCRISTINE
     Dosage: 2 MG/M2, EVERY 3 WEEKS (DOSE FORM: 293)
     Route: 042
     Dates: start: 20181114
  62. ACICLOVIR [Concomitant]
     Active Substance: ACYCLOVIR
     Indication: PROPHYLAXIS
     Dosage: 200 MG, QD
     Route: 065
     Dates: start: 20181025
  63. COTRIMOXAZOLE [Concomitant]
     Active Substance: SULFAMETHOXAZOLE\TRIMETHOPRIM
     Indication: CANDIDA INFECTION
     Dosage: 960 MG
     Route: 065
  64. LEVOTHYROXINE. [Concomitant]
     Active Substance: LEVOTHYROXINE
     Indication: HYPOTHYROIDISM
     Dosage: 100 MICROGRAM, QD
     Route: 065
     Dates: start: 2000
  65. METFORMIN [Concomitant]
     Active Substance: METFORMIN HYDROCHLORIDE
     Dosage: 1500 MG DAILY (DOSE FORM: 245)
     Route: 065
     Dates: start: 1999
  66. ZANAMIVIR [Concomitant]
     Active Substance: ZANAMIVIR
     Dosage: UNK
     Route: 065
     Dates: start: 20181207, end: 20181220
  67. SENNA ALEXANDRINA [Concomitant]
     Active Substance: SENNA LEAF
     Indication: CONSTIPATION
  68. OBINUTUZUMAB. [Suspect]
     Active Substance: OBINUTUZUMAB
     Indication: DIFFUSE LARGE B-CELL LYMPHOMA
     Dosage: 1000 MG (DOSE FORM: 230)
     Route: 042
     Dates: start: 20181025
  69. VINCRISTINE [Suspect]
     Active Substance: VINCRISTINE
     Dosage: 2 MG/M2, EVERY 3 WEEKS (DATE OF MOST RECENT DOSE PRIOR TO SAE ON 14/NOV/2018 AT 17:02) (DOSE FORM: 2
     Route: 042
     Dates: start: 20181025
  70. ACETYLSALICYLIC ACID [Concomitant]
     Active Substance: ASPIRIN
     Indication: PRODUCT USED FOR UNKNOWN INDICATION
     Dosage: 75 MG, QD
     Route: 065
  71. ALLOPURINOL. [Concomitant]
     Active Substance: ALLOPURINOL
     Indication: TUMOUR LYSIS SYNDROME
     Dosage: 300 MG, QD
     Route: 065
     Dates: start: 20181025, end: 201812
  72. ALLOPURINOL. [Concomitant]
     Active Substance: ALLOPURINOL
     Dosage: UNK
     Route: 065
     Dates: start: 20181121
  73. AMLODIPINE [Concomitant]
     Active Substance: AMLODIPINE BESYLATE
     Dosage: UNK
     Route: 065
     Dates: start: 20190618
  74. LEVOTHYROXINE. [Concomitant]
     Active Substance: LEVOTHYROXINE
     Dosage: UNK
     Route: 065
     Dates: start: 2000
  75. PARACETAMOL [Concomitant]
     Active Substance: ACETAMINOPHEN
     Dosage: AS REQUIRED
     Route: 065
     Dates: start: 20190125
  76. RENNIES [Concomitant]
     Indication: DYSPEPSIA
     Dosage: UNK
     Route: 065
     Dates: start: 201810, end: 201901
  77. SIMVASTATIN. [Concomitant]
     Active Substance: SIMVASTATIN
     Indication: PRODUCT USED FOR UNKNOWN INDICATION
     Dosage: 20 MG, QD
     Route: 065
  78. DOXORUBICIN HYDROCHLORIDE. [Suspect]
     Active Substance: DOXORUBICIN HYDROCHLORIDE
     Dosage: 90 MG/M2 EVERY 3 WEEKS (DOSE FORM: 230)
     Route: 042
     Dates: start: 20181025
  79. DOXORUBICIN HYDROCHLORIDE. [Suspect]
     Active Substance: DOXORUBICIN HYDROCHLORIDE
     Dosage: 90 MG/M2, EVERY 3 WEEKS (DOSE FORM: 230)
     Route: 042
     Dates: start: 20181114
  80. VINCRISTINE [Suspect]
     Active Substance: VINCRISTINE
     Indication: DIFFUSE LARGE B-CELL LYMPHOMA
     Dosage: 2 MG/M2, EVERY 3 WEEKS (DATE OF MOST RECENT DOSE PRIOR TO SAE ON 14/NOV/2018 AT 17:02) (DOSE FORM: 2
     Route: 042
     Dates: start: 20181025
  81. VINCRISTINE [Suspect]
     Active Substance: VINCRISTINE
     Dosage: 2 MG/M2, EVERY 3 WEEKS (DATE OF MOST RECENT DOSE PRIOR TO SAE ON 14/NOV/2018 AT 17:02) (DOSE FORM: 2
     Route: 042
     Dates: start: 20181025
  82. VINCRISTINE [Suspect]
     Active Substance: VINCRISTINE
     Dosage: 2 MG/M2, EVERY 3 WEEKS (DATE OF MOST RECENT DOSE PRIOR TO SAE ON 14/NOV/2018 AT 17:02) (DOSE FORM: 2
     Route: 042
     Dates: start: 20181025
  83. COTRIMOXAZOLE [Concomitant]
     Active Substance: SULFAMETHOXAZOLE\TRIMETHOPRIM
     Dosage: 2880 MG, 1/WEEK
     Route: 065
     Dates: start: 20181025
  84. FILGRASTIM [Concomitant]
     Active Substance: FILGRASTIM
     Dosage: 300 UG
     Route: 065
     Dates: start: 20181123, end: 20181127
  85. GLICLAZIDE [Concomitant]
     Active Substance: GLICLAZIDE
     Indication: TYPE 2 DIABETES MELLITUS
     Dosage: 120 MG, QD
     Route: 065
  86. RANITIDINE. [Concomitant]
     Active Substance: RANITIDINE
     Indication: GASTROINTESTINAL DISORDER PROPHYLAXIS
     Dosage: 300 MG, 1 DAY
     Route: 065
  87. RANITIDINE. [Concomitant]
     Active Substance: RANITIDINE
     Dosage: 300 MG
     Route: 065
     Dates: start: 20181025

REACTIONS (4)
  - Febrile neutropenia [Recovered/Resolved]
  - Off label use [Unknown]
  - Overdose [Unknown]
  - Product use in unapproved indication [Unknown]

NARRATIVE: CASE EVENT DATE: 20181123
